FAERS Safety Report 24762332 (Version 1)
Quarter: 2024Q4

REPORT INFORMATION
  Report Type: Spontaneous
  Country: US (occurrence: US)
  Receive Date: 20241221
  Receipt Date: 20241221
  Transmission Date: 20250114
  Serious: No
  Sender: ABBVIE
  Company Number: US-ABBVIE-6053585

PATIENT
  Age: 2 Month
  Sex: Female

DRUGS (1)
  1. CREON [Suspect]
     Active Substance: PANCRELIPASE AMYLASE\PANCRELIPASE LIPASE\PANCRELIPASE PROTEASE
     Indication: Cystic fibrosis
     Dosage: FORM STRENGTH: 3000 UNIT?START DATE TEXT: AT TIME OF BIRTH
     Route: 048
     Dates: start: 2024

REACTIONS (4)
  - Choking [Not Recovered/Not Resolved]
  - Retching [Not Recovered/Not Resolved]
  - Product use complaint [Not Recovered/Not Resolved]
  - Product size issue [Unknown]

NARRATIVE: CASE EVENT DATE: 20240101
